FAERS Safety Report 5661185-2 (Version None)
Quarter: 2008Q1

REPORT INFORMATION
  Report Type: 
  Country: None (occurrence: None)
  Receive Date: 20080306
  Receipt Date: 20080221
  Transmission Date: 20080703
  Serious: Yes (Hospitalization)
  Sender: FDA-Public Use
  Company Number: 2008S1003057

PATIENT
  Age: 48 Year
  Sex: Male

DRUGS (4)
  1. ATENOLOL [Suspect]
     Indication: HYPERTENSION
     Dosage: 100 MG;DAILY
  2. ALLOPURINOL [Suspect]
     Indication: DRUG USE FOR UNKNOWN INDICATION
     Dosage: 100 MG;DAILY
  3. ACETYLSALICYLIC ACID SRT [Suspect]
     Indication: HYPERTENSION
     Dosage: 75 MG;DAILY
  4. IRBESARTAN [Suspect]
     Indication: HYPERTENSION
     Dosage: 75 QD

REACTIONS (3)
  - DIARRHOEA [None]
  - RENAL FAILURE ACUTE [None]
  - SALMONELLOSIS [None]
